FAERS Safety Report 24156967 (Version 1)
Quarter: 2024Q3

REPORT INFORMATION
  Report Type: Spontaneous
  Country: CN (occurrence: CN)
  Receive Date: 20240731
  Receipt Date: 20240731
  Transmission Date: 20241017
  Serious: Yes (Hospitalization)
  Sender: MELINTA THERAPEUTICS
  Company Number: CN-AstraZeneca-2024A165704

PATIENT

DRUGS (2)
  1. METOPROLOL SUCCINATE [Suspect]
     Active Substance: METOPROLOL SUCCINATE
     Indication: Cardiac failure acute
     Dosage: 47.5 MILLIGRAM, QD
     Route: 048
     Dates: start: 20240118, end: 20240709
  2. ENTRESTO [Suspect]
     Active Substance: SACUBITRIL\VALSARTAN
     Indication: Cardiac failure acute
     Dosage: 200 MILLIGRAM, BID
     Dates: start: 20240118, end: 20240709

REACTIONS (8)
  - Asthenia [Unknown]
  - Chest discomfort [Unknown]
  - Coronary artery disease [Unknown]
  - Breath holding [Unknown]
  - Hypotension [Recovered/Resolved]
  - Dyspnoea [Unknown]
  - Cardiac failure [Unknown]
  - Dizziness [Unknown]

NARRATIVE: CASE EVENT DATE: 20240709
